FAERS Safety Report 5590850-0 (Version None)
Quarter: 2008Q1

REPORT INFORMATION
  Report Type: 
  Country: None (occurrence: None)
  Receive Date: 20080110
  Receipt Date: 20080102
  Transmission Date: 20080703
  Serious: Yes (Hospitalization)
  Sender: FDA-Public Use
  Company Number: 100#08#2008-00026

PATIENT
  Age: 30 Year
  Sex: Male

DRUGS (1)
  1. SULFAMETHOXAZOLE AND TRIMETHOPRIM [Suspect]
     Indication: URINARY TRACT INFECTION
     Dosage: 1920 MG TWICE DAILY ACCIDENTALLY HAD TAKEN DOUBLE DOSE OF MEDICATION (1920 MG INSTEAD OF 960 MG)

REACTIONS (20)
  - ACQUIRED DIAPHRAGMATIC EVENTRATION [None]
  - ASCITES [None]
  - CARDIOPULMONARY FAILURE [None]
  - COMPUTERISED TOMOGRAM ABDOMEN ABNORMAL [None]
  - HEPATITIS CHOLESTATIC [None]
  - HYPERSENSITIVITY [None]
  - HYPOTENSION [None]
  - IDIOSYNCRATIC DRUG REACTION [None]
  - INCORRECT DOSE ADMINISTERED [None]
  - LEUKOPENIA [None]
  - LUNG INFILTRATION [None]
  - METABOLIC ACIDOSIS [None]
  - PRODUCTIVE COUGH [None]
  - PYREXIA [None]
  - RASH ERYTHEMATOUS [None]
  - RASH MACULO-PAPULAR [None]
  - SKIN EXFOLIATION [None]
  - SPLENOMEGALY [None]
  - SYSTEMIC INFLAMMATORY RESPONSE SYNDROME [None]
  - THROMBOCYTOPENIA [None]
